FAERS Safety Report 20931200 (Version 1)
Quarter: 2022Q2

REPORT INFORMATION
  Report Type: Spontaneous
  Country: US (occurrence: US)
  Receive Date: 20220608
  Receipt Date: 20220608
  Transmission Date: 20220720
  Serious: Yes (Other)
  Sender: FDA-Public Use
  Company Number: US-Accord-265421

PATIENT
  Age: 75 Year
  Sex: Female
  Weight: 102.9 kg

DRUGS (19)
  1. AMLODIPINE [Suspect]
     Active Substance: AMLODIPINE BESYLATE
     Indication: Product used for unknown indication
  2. LISINOPRIL [Suspect]
     Active Substance: LISINOPRIL
     Indication: Product used for unknown indication
  3. MIFEPRISTONE [Suspect]
     Active Substance: MIFEPRISTONE
     Indication: Cushing^s syndrome
     Dosage: QD
     Route: 048
     Dates: start: 20220410
  4. ASPIRINE EC [Concomitant]
  5. ATORVASTATIN [Concomitant]
     Active Substance: ATORVASTATIN
  6. BUMETANIDE [Concomitant]
     Active Substance: BUMETANIDE
  7. DOXAZOSIN [Concomitant]
     Active Substance: DOXAZOSIN MESYLATE
  8. FLONASE [Concomitant]
     Active Substance: FLUTICASONE PROPIONATE
  9. GABAPENTIN [Concomitant]
     Active Substance: GABAPENTIN
  10. HYDROCHLOROTHIAZIDE [Concomitant]
     Active Substance: HYDROCHLOROTHIAZIDE
  11. EMPAGLIFLOZIN [Concomitant]
     Active Substance: EMPAGLIFLOZIN
  12. KLOR-CON [Concomitant]
     Active Substance: POTASSIUM CHLORIDE
  13. LEVOTHYROXINE [Concomitant]
     Active Substance: LEVOTHYROXINE
  14. METFORMIN [Concomitant]
     Active Substance: METFORMIN HYDROCHLORIDE
  15. METOPROLOL [Concomitant]
     Active Substance: METOPROLOL
  16. OMEPRAZOLE [Concomitant]
     Active Substance: OMEPRAZOLE
  17. PHOSPHATES [Concomitant]
  18. POTASSIUM [Concomitant]
     Active Substance: POTASSIUM
  19. PREMARIN [Concomitant]
     Active Substance: ESTROGENS, CONJUGATED

REACTIONS (11)
  - Ophthalmoplegia [Unknown]
  - VIth nerve paralysis [Unknown]
  - Balance disorder [Unknown]
  - Vision blurred [Unknown]
  - Arthritis [Unknown]
  - Diplopia [Not Recovered/Not Resolved]
  - Muscular weakness [Recovered/Resolved]
  - Arthralgia [Not Recovered/Not Resolved]
  - Blood pressure decreased [Recovered/Resolved]
  - Dizziness [Not Recovered/Not Resolved]
  - Fatigue [Unknown]

NARRATIVE: CASE EVENT DATE: 20220410
